FAERS Safety Report 11147433 (Version 2)
Quarter: 2015Q2

REPORT INFORMATION
  Report Type: Spontaneous
  Country: IN (occurrence: IN)
  Receive Date: 20150529
  Receipt Date: 20150606
  Transmission Date: 20150821
  Serious: Yes (Hospitalization, Other)
  Sender: FDA-Public Use
  Company Number: IN-AUROBINDO-AUR-APL-2015-04642

PATIENT
  Age: 40 Year
  Sex: Male

DRUGS (4)
  1. FLUOXETINE [Suspect]
     Active Substance: FLUOXETINE\FLUOXETINE HYDROCHLORIDE
     Indication: ALCOHOLISM
     Dosage: 20 MG, DAILY
     Route: 065
  2. NALTREXONE [Suspect]
     Active Substance: NALTREXONE
     Indication: ALCOHOL WITHDRAWAL SYNDROME
     Dosage: 50 MG, DAILY
     Route: 048
  3. FLUOXETINE [Suspect]
     Active Substance: FLUOXETINE\FLUOXETINE HYDROCHLORIDE
     Indication: FETISHISM
  4. FLUOXETINE [Suspect]
     Active Substance: FLUOXETINE\FLUOXETINE HYDROCHLORIDE
     Indication: DRUG DEPENDENCE

REACTIONS (4)
  - Alcohol withdrawal syndrome [Recovered/Resolved]
  - Ejaculation delayed [Recovered/Resolved]
  - Libido decreased [Recovered/Resolved]
  - Sexual dysfunction [Recovered/Resolved]
